FAERS Safety Report 10203110 (Version 1)
Quarter: 2014Q2

REPORT INFORMATION
  Report Type: Spontaneous
  Country: US (occurrence: US)
  Receive Date: 20140529
  Receipt Date: 20140529
  Transmission Date: 20141212
  Serious: Yes (Hospitalization)
  Sender: FDA-Public Use
  Company Number: US-ROCHE-1409733

PATIENT
  Age: 42 Year
  Sex: Female

DRUGS (14)
  1. XOLAIR [Suspect]
     Indication: ASTHMA
     Route: 058
  2. SINGULAIR [Concomitant]
     Dosage: AT BEDTIME
     Route: 048
  3. PLAQUENIL [Concomitant]
     Route: 048
  4. PREDNISONE [Concomitant]
     Dosage: AS NEEDED
     Route: 048
  5. NASONEX [Concomitant]
     Dosage: 2 SPRAYS ONCE A DAY
     Route: 045
  6. ALLEGRA [Concomitant]
     Dosage: AS NEEDED
     Route: 048
  7. NEXIUM [Concomitant]
     Route: 048
  8. MECLIZINE [Concomitant]
     Indication: DIZZINESS
     Dosage: AS NEEDED
     Route: 048
  9. IBUPROFEN [Concomitant]
     Dosage: AS NEEDED
     Route: 048
  10. MUCINEX [Concomitant]
     Route: 048
  11. EPIPEN [Concomitant]
     Dosage: AS NEEDED
     Route: 065
  12. ALBUTEROL SULFATE [Concomitant]
     Dosage: AS NEEDED
     Route: 055
  13. QVAR [Concomitant]
     Dosage: 2 INHALATIONS DAILY
     Route: 055
  14. COLACE [Concomitant]
     Route: 048

REACTIONS (1)
  - Asthma [Unknown]
